FAERS Safety Report 8449162-X (Version None)
Quarter: 2012Q2

REPORT INFORMATION
  Report Type: 
  Country: None (occurrence: None)
  Receive Date: 20120612
  Receipt Date: 20120530
  Transmission Date: 20120825
  Serious: Yes (Other)
  Sender: FDA-Public Use
  Company Number: ABR_00494_2012

PATIENT
  Age: 92 Year
  Sex: Male

DRUGS (2)
  1. ERYTHROMYCIN [Suspect]
     Indication: STAPHYLOCOCCAL INFECTION
     Dosage: (1000 MG QD)
  2. LINEZOLID [Suspect]
     Indication: STAPHYLOCOCCAL INFECTION
     Dosage: (1200 MG QD INTRAVENOUS (NOT OTHERWISE SPECIFIED))
     Route: 042

REACTIONS (2)
  - DECREASED APPETITE [None]
  - PANCYTOPENIA [None]
